FAERS Safety Report 12415487 (Version 3)
Quarter: 2019Q2

REPORT INFORMATION
  Report Type: Spontaneous
  Country: US (occurrence: US)
  Receive Date: 20160530
  Receipt Date: 20190405
  Transmission Date: 20190711
  Serious: No
  Sender: FDA-Public Use
  Company Number: US-PFIZER INC-2016260863

PATIENT
  Age: 31 Year
  Sex: Female

DRUGS (2)
  1. NORINYL [Concomitant]
     Indication: CONTRACEPTION
     Dosage: UNK
     Dates: start: 2009
  2. EFFEXOR XR [Suspect]
     Active Substance: VENLAFAXINE HYDROCHLORIDE
     Indication: ANXIETY DISORDER
     Dosage: 37.5 MG, 1X/DAY
     Dates: start: 2002

REACTIONS (5)
  - Condition aggravated [Recovered/Resolved]
  - Withdrawal syndrome [Unknown]
  - Paraesthesia [Recovered/Resolved]
  - Panic attack [Recovered/Resolved]
  - Anxiety [Recovered/Resolved]

NARRATIVE: CASE EVENT DATE: 2002
